FAERS Safety Report 4784372-4 (Version None)
Quarter: 2005Q3

REPORT INFORMATION
  Report Type: 
  Country: None (occurrence: None)
  Receive Date: 20050928
  Receipt Date: 20050915
  Transmission Date: 20060218
  Serious: Yes (Other)
  Sender: FDA-Public Use
  Company Number: 2005130625

PATIENT
  Age: 43 Year
  Sex: Male
  Weight: 120.2032 kg

DRUGS (3)
  1. GENOTROPIN [Suspect]
     Indication: BRAIN NEOPLASM
     Dosage: 5 MG (5 MG, DAILY)
  2. SYNTHROID [Concomitant]
  3. DDAVP [Concomitant]

REACTIONS (2)
  - EPILEPSY [None]
  - INCORRECT DOSE ADMINISTERED [None]
